FAERS Safety Report 11959145 (Version 2)
Quarter: 2016Q1

REPORT INFORMATION
  Report Type: Spontaneous
  Country: JP (occurrence: JP)
  Receive Date: 20160126
  Receipt Date: 20160208
  Transmission Date: 20160526
  Serious: Yes (Other)
  Sender: FDA-Public Use
  Company Number: PHJP2015JP006927

PATIENT
  Age: 27 Year
  Sex: Female
  Weight: 56 kg

DRUGS (3)
  1. DOXYCYCLINE. [Concomitant]
     Active Substance: DOXYCYCLINE
     Indication: MALARIA
     Route: 048
  2. RIAMET [Suspect]
     Active Substance: ARTEMETHER\LUMEFANTRINE
     Indication: MALARIA
     Dosage: 1 DF, UNK (20 MG OF ARTEMETHER AND 120 MG OF LUMEFANTRINE)
     Route: 048
  3. QUININE [Concomitant]
     Active Substance: QUININE
     Indication: MALARIA
     Route: 048

REACTIONS (1)
  - Haemolytic anaemia [Recovering/Resolving]
